FAERS Safety Report 15824980 (Version 2)
Quarter: 2019Q4

REPORT INFORMATION
  Report Type: Report from Study
  Country: CA (occurrence: CA)
  Receive Date: 20190115
  Receipt Date: 20191129
  Transmission Date: 20200122
  Serious: No
  Sender: FDA-Public Use
  Company Number: CA-ROCHE-2245764

PATIENT
  Age: 40 Year
  Sex: Female

DRUGS (8)
  1. OCREVUS [Suspect]
     Active Substance: OCRELIZUMAB
     Indication: RELAPSING-REMITTING MULTIPLE SCLEROSIS
     Dosage: AT DAY 0 AND 14, THEN 600 MG EVERY 6 MONTH
     Route: 042
     Dates: start: 20171128
  2. SALBUTAMOL [Concomitant]
     Active Substance: ALBUTEROL
  3. TRINTELLIX [Concomitant]
     Active Substance: VORTIOXETINE HYDROBROMIDE
     Indication: DEPRESSION
     Route: 065
  4. IBUPROFEN. [Concomitant]
     Active Substance: IBUPROFEN
  5. FLOVENT [Concomitant]
     Active Substance: FLUTICASONE PROPIONATE
  6. CYCLEN [Concomitant]
     Active Substance: ETHINYL ESTRADIOL\NORGESTIMATE
  7. LORATADINE. [Concomitant]
     Active Substance: LORATADINE
  8. ROBAX PLATINUM [Concomitant]
     Active Substance: IBUPROFEN\METHOCARBAMOL

REACTIONS (3)
  - Nasopharyngitis [Recovering/Resolving]
  - Cough [Unknown]
  - Decreased vibratory sense [Unknown]

NARRATIVE: CASE EVENT DATE: 201812
